FAERS Safety Report 7898524-8 (Version None)
Quarter: 2011Q4

REPORT INFORMATION
  Report Type: 
  Country: None (occurrence: None)
  Receive Date: 20111101
  Receipt Date: 20101004
  Transmission Date: 20120403
  Serious: Yes (Hospitalization)
  Sender: FDA-Public Use
  Company Number: 250537USA

PATIENT
  Age: 19 Year
  Sex: Female

DRUGS (1)
  1. BECLOMETHASONE DIPROPIONATE [Suspect]
     Indication: LUNG DISORDER
     Dosage: RESPIRATORY (INHALATION)
     Route: 055
     Dates: start: 20100501, end: 20100501

REACTIONS (1)
  - LUNG DISORDER [None]
